FAERS Safety Report 7987326-X (Version None)
Quarter: 2011Q4

REPORT INFORMATION
  Report Type: 
  Country: None (occurrence: None)
  Receive Date: 20111216
  Receipt Date: 20111014
  Transmission Date: 20120403
  Serious: No
  Sender: FDA-Public Use
  Company Number: US-BRISTOL-MYERS SQUIBB COMPANY-16163214

PATIENT
  Sex: Female

DRUGS (2)
  1. ABILIFY [Suspect]
     Indication: DEPRESSION
     Dosage: AT MORNING
     Dates: start: 20110101
  2. ZOLOFT [Suspect]
     Indication: DEPRESSION

REACTIONS (2)
  - FATIGUE [None]
  - COUGH [None]
